FAERS Safety Report 16738237 (Version 1)
Quarter: 2019Q3

REPORT INFORMATION
  Report Type: Spontaneous
  Country: NL (occurrence: NL)
  Receive Date: 20190825
  Receipt Date: 20190825
  Transmission Date: 20191005
  Serious: Yes (Death)
  Sender: FDA-Public Use
  Company Number: NL-TEVA-2019-NL-1095036

PATIENT
  Age: 17 Year
  Sex: Male
  Weight: 51 kg

DRUGS (12)
  1. PENTACARINAT [Suspect]
     Active Substance: PENTAMIDINE ISETHIONATE
     Indication: INFECTION PROPHYLAXIS
     Dosage: 3 KG AT 1 KG (1 MUG / KG),  200MG
     Dates: start: 20190409, end: 20190530
  2. VALCACICLOVIR TABLET 500MG [Concomitant]
     Dosage: 2X PER DAY 500MG
  3. FOSAPREPITANT INFUSIEPOEDER 150MG [Concomitant]
     Dosage: 1X PER DAY 80 MG
  4. PREGABALINE CAPSULE, 25 MG (MILLIGRAM) [Suspect]
     Active Substance: PREGABALIN
     Indication: PAIN
     Dosage: 2X PER DAY 25 MG
     Dates: start: 20190514, end: 20190531
  5. LORAZEPAM TABLET 1 MG [Concomitant]
     Dosage: ZN 0.5 MG 3X DAILY, 1 DF
  6. MAGNESIUMSULFAAT INJVLST 100 MG/ML [Concomitant]
     Dosage: 3X PER DAY 1000 MG
  7. PREDNISOLON INJPDR 25 MG [Concomitant]
     Dosage: 3X PER DAY 10 MG
  8. FYTOMENADION INJVL 10MG/ML [Concomitant]
     Dosage: 1X PER DAY 10 MG
  9. PROGRAFT (TACROLIMUS) CAPSULE, 5 MG (MILLIGRAM) [Suspect]
     Active Substance: TACROLIMUS
     Indication: GRAFT VERSUS HOST DISEASE
     Dosage: 2X PER DAY 5 MG
     Dates: start: 20190420, end: 20190530
  10. CIPROFLOXACINE [CIPROFLOXACIN] [Suspect]
     Active Substance: CIPROFLOXACIN
     Indication: DEVICE RELATED INFECTION
     Dosage: 3X PER DAY 400 MG
     Dates: start: 20190521, end: 20190530
  11. RANITIDINE. [Suspect]
     Active Substance: RANITIDINE
     Indication: PROPHYLAXIS AGAINST GASTROINTESTINAL ULCER
     Dosage: 2X PER DAY 150 MG
     Dates: start: 20190520, end: 20190529
  12. ONDANSETRON 6MG [Concomitant]
     Dosage: ZN 3X PER DAY 6 MG

REACTIONS (1)
  - Pancreatitis acute [Fatal]

NARRATIVE: CASE EVENT DATE: 20190529
